FAERS Safety Report 8434641-1 (Version None)
Quarter: 2012Q2

REPORT INFORMATION
  Report Type: 
  Country: None (occurrence: None)
  Receive Date: 20120614
  Receipt Date: 20120601
  Transmission Date: 20120825
  Serious: Yes (Death, Other)
  Sender: FDA-Public Use
  Company Number: NO-ACCORD-010959

PATIENT
  Age: 49 Year
  Sex: Male

DRUGS (7)
  1. ETOPOSIDE [Suspect]
     Route: 042
  2. BLEOMYCIN SULFATE [Suspect]
     Route: 042
  3. DOXORUBICIN HCL [Suspect]
     Route: 042
  4. VINCRISTINE [Suspect]
     Route: 042
  5. PREDNISOLONE [Suspect]
     Route: 048
  6. PROCARBAZINE HYDROCHLORIDE [Suspect]
     Route: 048
  7. CYCLOPHOSPHAMIDE [Suspect]
     Route: 042

REACTIONS (7)
  - OFF LABEL USE [None]
  - PYREXIA [None]
  - SEPTIC SHOCK [None]
  - BONE MARROW FAILURE [None]
  - INFECTION [None]
  - PNEUMOCYSTIS JIROVECI PNEUMONIA [None]
  - LUNG INFILTRATION [None]
